FAERS Safety Report 6452754-0 (Version None)
Quarter: 2009Q4

REPORT INFORMATION
  Report Type: 
  Country: None (occurrence: None)
  Receive Date: 20091124
  Receipt Date: 20091111
  Transmission Date: 20100525
  Serious: Yes (Other)
  Sender: FDA-Public Use
  Company Number: US-PFIZER INC-2009298055

PATIENT
  Sex: Female
  Weight: 56.699 kg

DRUGS (7)
  1. CHANTIX [Suspect]
     Indication: SMOKING CESSATION THERAPY
     Dosage: 1 MG, 2X/DAY
     Route: 048
     Dates: start: 20090901
  2. CHANTIX [Suspect]
     Dosage: 0.5 MG, 1X/DAY
     Route: 048
     Dates: start: 20090901
  3. WELLBUTRIN SR [Concomitant]
     Indication: DEPRESSION
     Route: 048
  4. WELLBUTRIN SR [Concomitant]
     Indication: ANXIETY
  5. CLONAZEPAM [Concomitant]
     Indication: DEPRESSION
     Dosage: 0.5 MG, 1 OR 1.5 TABLETS AS NEEDED
     Route: 048
  6. CLONAZEPAM [Concomitant]
     Indication: ANXIETY
  7. AMPHETAMINE SULFATE [Concomitant]
     Dosage: 15MG IN MORNING, 5MG AT LUNCH
     Route: 048

REACTIONS (4)
  - ANXIETY [None]
  - DEPRESSION [None]
  - OBSESSIVE THOUGHTS [None]
  - PARANOIA [None]
